FAERS Safety Report 9062126 (Version 1)
Quarter: 2013Q1

REPORT INFORMATION
  Report Type: Report from Study
  Country: US (occurrence: US)
  Receive Date: 20130129
  Receipt Date: 20130129
  Transmission Date: 20140127
  Serious: Yes (Other)
  Sender: FDA-Public Use
  Company Number: US-JNJFOC-20130112675

PATIENT
  Age: 66 None
  Sex: Female
  Weight: 51.26 kg

DRUGS (5)
  1. SIMPONI [Suspect]
     Indication: RHEUMATOID ARTHRITIS
     Route: 058
     Dates: start: 20130109
  2. SIMPONI [Suspect]
     Indication: RHEUMATOID ARTHRITIS
     Route: 058
     Dates: start: 2011
  3. ARAVA [Concomitant]
     Indication: RHEUMATOID ARTHRITIS
  4. MELOXICAM [Concomitant]
     Indication: INFLAMMATION
     Route: 048
  5. SYNTHROID [Concomitant]
     Indication: THYROID DISORDER
     Route: 048

REACTIONS (5)
  - Mouth ulceration [Not Recovered/Not Resolved]
  - Muscle tightness [Not Recovered/Not Resolved]
  - Influenza like illness [Recovered/Resolved]
  - Joint swelling [Recovered/Resolved]
  - Pyrexia [Not Recovered/Not Resolved]
